FAERS Safety Report 7468239-9 (Version None)
Quarter: 2011Q2

REPORT INFORMATION
  Report Type: 
  Country: None (occurrence: None)
  Receive Date: 20110509
  Receipt Date: 20110504
  Transmission Date: 20111010
  Serious: Yes (Death, Life-Threatening, Hospitalization)
  Sender: FDA-Public Use
  Company Number: GB-ABBOTT-10P-167-0671383-00

PATIENT
  Sex: Female
  Weight: 40 kg

DRUGS (10)
  1. DIAZEPAM [Concomitant]
     Indication: PRODUCT USED FOR UNKNOWN INDICATION
  2. CALCIUM +VIT D [Concomitant]
     Indication: PRODUCT USED FOR UNKNOWN INDICATION
  3. ZOLEDRONIC ACID [Concomitant]
     Indication: OSTEOPOROSIS
     Route: 042
     Dates: start: 20091216
  4. ACETAMINOPHEN [Concomitant]
     Indication: PRODUCT USED FOR UNKNOWN INDICATION
  5. DICLOFENAC [Concomitant]
     Indication: PRODUCT USED FOR UNKNOWN INDICATION
  6. SULPHASALAZINE [Concomitant]
     Indication: PRODUCT USED FOR UNKNOWN INDICATION
     Dates: start: 20060427, end: 20090510
  7. STEROIDS [Concomitant]
     Indication: RHEUMATOID ARTHRITIS
  8. MOVIPREP [Concomitant]
     Indication: PRODUCT USED FOR UNKNOWN INDICATION
  9. MORPHINE [Concomitant]
     Indication: PRODUCT USED FOR UNKNOWN INDICATION
  10. HUMIRA [Suspect]
     Indication: RHEUMATOID ARTHRITIS
     Route: 058
     Dates: start: 20060427, end: 20100510

REACTIONS (5)
  - BRONCHIAL CARCINOMA [None]
  - RESPIRATORY ARREST [None]
  - NON-SMALL CELL LUNG CANCER STAGE IV [None]
  - MASS [None]
  - LUNG NEOPLASM MALIGNANT [None]
